FAERS Safety Report 4309672-3 (Version None)
Quarter: 2004Q1

REPORT INFORMATION
  Report Type: 
  Country: None (occurrence: None)
  Receive Date: 20040302
  Receipt Date: 20040220
  Transmission Date: 20041129
  Serious: Yes (Other)
  Sender: FDA-Public Use
  Company Number: US-JNJFOC-20040204902

PATIENT
  Age: 57 Year
  Sex: Male

DRUGS (10)
  1. REMICADE [Suspect]
     Indication: RHEUMATOID ARTHRITIS
     Dosage: INTRAVENOUS
     Route: 042
     Dates: start: 20000104, end: 20000401
  2. ARAVA [Concomitant]
  3. VIOXX [Concomitant]
  4. AXID [Concomitant]
  5. PREDNISONE [Concomitant]
  6. LIPITOR [Concomitant]
  7. LASIX [Concomitant]
  8. ORAL DIABETIC MEDICATION (ORAL DIABETIC MEDICATION) [Concomitant]
  9. COSPRATE (ALL OTHER THERAPEUTIC PRODUCTS) [Concomitant]
  10. PAIN PATCH (ANALGESIC) [Concomitant]

REACTIONS (1)
  - BASAL CELL CARCINOMA [None]
